FAERS Safety Report 11938222 (Version 3)
Quarter: 2016Q1

REPORT INFORMATION
  Report Type: Report from Study
  Country: US (occurrence: US)
  Receive Date: 20160122
  Receipt Date: 20160314
  Transmission Date: 20160526
  Serious: Yes (Hospitalization, Other)
  Sender: FDA-Public Use
  Company Number: US-BAYER-2016-008210

PATIENT
  Age: 61 Year
  Sex: Male
  Weight: 58.5 kg

DRUGS (14)
  1. FLUOCINONIDE. [Concomitant]
     Active Substance: FLUOCINONIDE
  2. HYDROCODONE W/ACETAMINOPHEN [Concomitant]
     Active Substance: ACETAMINOPHEN\HYDROCODONE BITARTRATE
  3. PREDNISONE. [Concomitant]
     Active Substance: PREDNISONE
  4. LISINOPRIL. [Concomitant]
     Active Substance: LISINOPRIL
  5. STIVARGA [Suspect]
     Active Substance: REGORAFENIB
     Indication: COLON CANCER
     Dosage: 160 MG, QD FOR 21 DAYS ON
     Route: 048
  6. DRONABINOL. [Concomitant]
     Active Substance: DRONABINOL
  7. ESZOPICLONE. [Concomitant]
     Active Substance: ESZOPICLONE
  8. HYDROMORPHONE [Concomitant]
     Active Substance: HYDROMORPHONE
  9. IRON [Concomitant]
     Active Substance: IRON
  10. CIPROFLOXACIN. [Concomitant]
     Active Substance: CIPROFLOXACIN
  11. MEGESTROL ACETATE. [Concomitant]
     Active Substance: MEGESTROL ACETATE
     Dosage: UNK
  12. STIVARGA [Suspect]
     Active Substance: REGORAFENIB
     Indication: COLON CANCER
     Dosage: 160 MG ONCE DAILY FOR 21 DAYS ON/7 DAYS OFF
     Route: 048
     Dates: start: 20160106
  13. COLACE [Concomitant]
     Active Substance: DOCUSATE SODIUM
  14. ZOLPIDEM TARTRATE. [Concomitant]
     Active Substance: ZOLPIDEM TARTRATE

REACTIONS (10)
  - Urinary tract infection [None]
  - Body temperature increased [None]
  - Tongue blistering [Not Recovered/Not Resolved]
  - Oral mucosal blistering [Not Recovered/Not Resolved]
  - Blood pressure increased [None]
  - Stomatitis [Recovering/Resolving]
  - Skin fissures [Recovering/Resolving]
  - Decreased appetite [Not Recovered/Not Resolved]
  - Heart rate increased [None]
  - Weight decreased [Unknown]

NARRATIVE: CASE EVENT DATE: 20160112
